FAERS Safety Report 9751378 (Version 1)
Quarter: 2013Q4

REPORT INFORMATION
  Report Type: Spontaneous
  Country: US (occurrence: US)
  Receive Date: 20131212
  Receipt Date: 20131212
  Transmission Date: 20140711
  Serious: No
  Sender: FDA-Public Use
  Company Number: US-BIOGENIDEC-2013BI096111

PATIENT
  Age: 51 Year
  Sex: Female

DRUGS (16)
  1. TECFIDERA [Suspect]
     Indication: MULTIPLE SCLEROSIS
     Route: 048
     Dates: start: 20130523
  2. ASPIRIN [Concomitant]
  3. CRESTOR [Concomitant]
  4. IBUPROFEN [Concomitant]
  5. KEPPRA [Concomitant]
  6. KLONOPIN [Concomitant]
  7. MIRAPEX [Concomitant]
  8. NITROGLYCERIN [Concomitant]
  9. NORVASE [Concomitant]
  10. OMEGA 3 FISH OIL [Concomitant]
  11. POTASSIUM [Concomitant]
  12. PROVIGIL [Concomitant]
  13. PROZAC [Concomitant]
  14. RELPAX [Concomitant]
  15. TOPAMAX [Concomitant]
  16. TOPROL [Concomitant]

REACTIONS (2)
  - Fatigue [Unknown]
  - Blood count abnormal [Unknown]
